FAERS Safety Report 8861618 (Version 1)
Quarter: 2012Q4

REPORT INFORMATION
  Report Type: Spontaneous
  Country: SG (occurrence: None)
  Receive Date: 20121024
  Receipt Date: 20121024
  Transmission Date: 20130627
  Serious: Yes (Hospitalization, Other)
  Sender: FDA-Public Use
  Company Number: 2012AP003411

PATIENT
  Age: 89 Year
  Sex: Female

DRUGS (4)
  1. ALENDRONIC ACID (ALENDRONIC ACID) [Suspect]
     Indication: OSTEOPOROSIS
  2. TERIPARATIDE (TERIPARATIDE) [Concomitant]
  3. VITAMIN D NOS (VITAMIN D NOS) [Concomitant]
  4. CALCIUM (CALCIUM) [Concomitant]

REACTIONS (5)
  - Bone disorder [None]
  - Fracture nonunion [None]
  - Pain in extremity [None]
  - Vitamin D decreased [None]
  - Femur fracture [None]
